FAERS Safety Report 21438263 (Version 1)
Quarter: 2022Q4

REPORT INFORMATION
  Report Type: Spontaneous
  Country: US (occurrence: US)
  Receive Date: 20221011
  Receipt Date: 20221011
  Transmission Date: 20230113
  Serious: No
  Sender: FDA-Public Use
  Company Number: US-Melinta Therapeutics, LLC-US-MLNT-22-00141

PATIENT
  Sex: Female

DRUGS (1)
  1. KIMYRSA [Suspect]
     Active Substance: ORITAVANCIN DIPHOSPHATE
     Indication: Cellulitis
     Dosage: NOT PROVIDED.
     Route: 041
     Dates: start: 20220828, end: 20220828

REACTIONS (5)
  - Feeling cold [Unknown]
  - Chills [Not Recovered/Not Resolved]
  - Pruritus [Not Recovered/Not Resolved]
  - Muscle spasms [Unknown]
  - Headache [Unknown]

NARRATIVE: CASE EVENT DATE: 20220828
